FAERS Safety Report 9439908 (Version 2)
Quarter: 2013Q3

REPORT INFORMATION
  Report Type: Report from Study
  Country: DE (occurrence: DE)
  Receive Date: 20130805
  Receipt Date: 20130829
  Transmission Date: 20140515
  Serious: Yes (Hospitalization)
  Sender: FDA-Public Use
  Company Number: DE-MILLENNIUM PHARMACEUTICALS, INC.-2013-05713

PATIENT
  Sex: 0

DRUGS (3)
  1. VELCADE [Suspect]
     Indication: PLASMA CELL MYELOMA
     Dosage: UNK
     Route: 065
     Dates: start: 20110517, end: 20130506
  2. BISPHOSPHONATES [Concomitant]
     Dosage: UNK
     Dates: start: 20110517
  3. ACICLOVIR [Concomitant]
     Dosage: UNK
     Dates: start: 20110627

REACTIONS (1)
  - Bradycardia [Recovered/Resolved]
